FAERS Safety Report 8415943-1 (Version None)
Quarter: 2012Q2

REPORT INFORMATION
  Report Type: 
  Country: None (occurrence: None)
  Receive Date: 20120530
  Receipt Date: 20120515
  Transmission Date: 20120825
  Serious: Yes (Other)
  Sender: FDA-Public Use
  Company Number: 2012P1030712

PATIENT
  Age: 50 Year
  Sex: Female

DRUGS (2)
  1. CEFTAZIDIME [Suspect]
     Dosage: 3 MG; IV
     Route: 042
  2. DOXYCYCLINE [Concomitant]

REACTIONS (4)
  - COLD SWEAT [None]
  - DIARRHOEA [None]
  - NAUSEA [None]
  - PALLOR [None]
